FAERS Safety Report 5419105-1 (Version None)
Quarter: 2007Q3

REPORT INFORMATION
  Report Type: 
  Country: None (occurrence: None)
  Receive Date: 20070820
  Receipt Date: 20070810
  Transmission Date: 20080115
  Serious: Yes (Congenital Anomaly)
  Sender: FDA-Public Use
  Company Number: CH-ELI_LILLY_AND_COMPANY-CH200708002197

PATIENT

DRUGS (6)
  1. ZYPREXA [Suspect]
     Indication: PERSONALITY DISORDER
     Dosage: 5 MG, AS NEEDED
     Route: 064
     Dates: start: 20061015
  2. CIPRALEX /01588502/ [Concomitant]
     Indication: PERSONALITY DISORDER
     Dosage: 5 MG, 2/D
     Route: 064
     Dates: start: 20061015
  3. CONCERTA [Concomitant]
     Indication: PERSONALITY DISORDER
     Dosage: 54 MEQ, DAILY (1/D)
     Route: 064
     Dates: start: 20061015
  4. METHADONE HCL [Concomitant]
     Indication: PERSONALITY DISORDER
     Dosage: 35 MG, DAILY (1/D)
     Route: 064
     Dates: start: 20061015
  5. SERESTA [Concomitant]
     Indication: PERSONALITY DISORDER
     Dosage: 75 MG, DAILY (1/D)
     Route: 064
     Dates: start: 20061015
  6. VALIUM [Concomitant]
     Indication: PERSONALITY DISORDER
     Dosage: 5 MG, 2/D
     Route: 064
     Dates: start: 20070101

REACTIONS (2)
  - DRUG EXPOSURE DURING PREGNANCY [None]
  - HEART DISEASE CONGENITAL [None]
